FAERS Safety Report 4964730-5 (Version None)
Quarter: 2006Q1

REPORT INFORMATION
  Report Type: 
  Country: None (occurrence: None)
  Receive Date: 20060331
  Receipt Date: 20060313
  Transmission Date: 20060701
  Serious: Yes (Other)
  Sender: FDA-Public Use
  Company Number: 34305

PATIENT
  Age: 71 Year
  Sex: Male
  Weight: 104.3273 kg

DRUGS (2)
  1. BETADINE [Suspect]
     Indication: SURGERY
     Dates: start: 20060307, end: 20060307
  2. BSS PLUS [Suspect]
     Indication: SURGERY
     Dosage: 20 ML SINGLE SURGICAL USE IO
     Route: 031
     Dates: start: 20060307, end: 20060307

REACTIONS (5)
  - ENDOPHTHALMITIS [None]
  - PHARMACEUTICAL PRODUCT COMPLAINT [None]
  - POOR QUALITY DRUG ADMINISTERED [None]
  - POSTOPERATIVE INFECTION [None]
  - WRONG TECHNIQUE IN DRUG USAGE PROCESS [None]
